FAERS Safety Report 25268523 (Version 1)
Quarter: 2025Q2

REPORT INFORMATION
  Report Type: Spontaneous
  Country: GB (occurrence: GB)
  Receive Date: 20250505
  Receipt Date: 20250505
  Transmission Date: 20250717
  Serious: Yes (Hospitalization, Other)
  Sender: ACCORD
  Company Number: None

PATIENT
  Age: 81 Year
  Sex: Female

DRUGS (13)
  1. PIOGLITAZONE [Suspect]
     Active Substance: PIOGLITAZONE
     Indication: Product used for unknown indication
  2. METFORMIN [Concomitant]
     Active Substance: METFORMIN HYDROCHLORIDE
     Dosage: 850MG TABLETS, ONE TO BE TAKEN WITH BREAKFAST AND EVENING MEAL
  3. IBUPROFEN [Concomitant]
     Active Substance: IBUPROFEN
     Dosage: 5% GEL, APPLY UP TO THREE TIMES A DAY
  4. FAMOTIDINE [Concomitant]
     Active Substance: FAMOTIDINE
  5. ATORVASTATIN [Concomitant]
     Active Substance: ATORVASTATIN
  6. CALCIUM CARBONATE\CHOLECALCIFEROL [Concomitant]
     Active Substance: CALCIUM CARBONATE\CHOLECALCIFEROL
     Dosage: STRENGTH: 1500MG/400UNIT, ONE TO BE TAKEN TWICE A DAY
  7. SODIUM HYALURONATE [Concomitant]
     Active Substance: HYALURONATE SODIUM
     Dosage: STRENGTH: 0.2 %
  8. SENNA [Concomitant]
     Active Substance: SENNOSIDES
     Dosage: STRENGTH: 7.5 MG, TWO TO BE TAKEN AT NIGHT
  9. ACETAMINOPHEN [Concomitant]
     Active Substance: ACETAMINOPHEN
     Dosage: 500MG TABLETS, TWO TO BE TAKEN EVERY 4-6 HOURS UP TO FOUR TIMES A DAY WHEN REQUIRED
  10. LANOLIN\LIGHT MINERAL OIL\PARAFFIN [Concomitant]
     Active Substance: LANOLIN\LIGHT MINERAL OIL\PARAFFIN
  11. TAMSULOSIN [Concomitant]
     Active Substance: TAMSULOSIN
  12. EDOXABAN [Concomitant]
     Active Substance: EDOXABAN
  13. ACETYLCYSTEINE [Concomitant]
     Active Substance: ACETYLCYSTEINE
     Dosage: 600MG EFFERVESCENT TABLETS SUGAR FREE, ONE TO BE DISSOLVED IN WATER EACH DAY

REACTIONS (2)
  - Cardiac failure [Unknown]
  - Ejection fraction decreased [Unknown]
